FAERS Safety Report 13514791 (Version 1)
Quarter: 2017Q2

REPORT INFORMATION
  Report Type: Report from Study
  Country: US (occurrence: US)
  Receive Date: 20170504
  Receipt Date: 20170504
  Transmission Date: 20170830
  Serious: No
  Sender: FDA-Public Use
  Company Number: PHEH2017US013217

PATIENT
  Sex: Female
  Weight: 56.69 kg

DRUGS (1)
  1. IMATINIB [Suspect]
     Active Substance: IMATINIB
     Indication: MOVEMENT DISORDER
     Dosage: 400 MG, QD
     Route: 048
     Dates: start: 20170101, end: 20170301

REACTIONS (4)
  - Muscle spasms [Recovered/Resolved]
  - Product use in unapproved indication [Unknown]
  - Diarrhoea [Recovered/Resolved]
  - Decreased appetite [Recovered/Resolved]
